FAERS Safety Report 8849338 (Version 1)
Quarter: 2012Q4

REPORT INFORMATION
  Report Type: 
  Country: US (occurrence: US)
  Receive Date: 20121016
  Receipt Date: 20121016
  Transmission Date: 20130627
  Serious: No
  Sender: FDA-Public Use
  Company Number: US-VERTEX PHARMACEUTICAL INC.-2012-022014

PATIENT
  Age: 23 Year
  Sex: Male
  Weight: 76 kg

DRUGS (3)
  1. VX-950 [Suspect]
     Indication: HEPATITIS C
     Dosage: UNK
     Route: 048
  2. PEGASYS [Concomitant]
     Indication: HEPATITIS C
     Dosage: 180 UNK, UNK
  3. RIBAVIRIN [Concomitant]
     Indication: HEPATITIS C
     Dosage: 200 mg, UNK

REACTIONS (12)
  - White blood cell count decreased [Unknown]
  - Influenza like illness [Unknown]
  - Myokymia [Unknown]
  - Vision blurred [Unknown]
  - Dry skin [Unknown]
  - Alopecia [Unknown]
  - Hair texture abnormal [Unknown]
  - Decreased appetite [Unknown]
  - Anaemia [Unknown]
  - Dysgeusia [Unknown]
  - Pruritus [Unknown]
  - Nausea [Unknown]
